FAERS Safety Report 6381193-6 (Version None)
Quarter: 2009Q3

REPORT INFORMATION
  Report Type: 
  Country: None (occurrence: None)
  Receive Date: 20090929
  Receipt Date: 20090813
  Transmission Date: 20100115
  Serious: No
  Sender: FDA-Public Use
  Company Number: US-TYCO HEALTHCARE/MALLINCKRODT-T200901552

PATIENT
  Age: 14 Year
  Sex: Male

DRUGS (13)
  1. TECHNETIUM TC 99M SESTAMIBI [Suspect]
     Indication: SCAN
     Dosage: UNK
     Dates: start: 20090813, end: 20090813
  2. ULTRA-TECHNEKOW [Concomitant]
     Indication: SCAN
     Dosage: UNK
     Dates: start: 20090813, end: 20090813
  3. EPOGEN [Concomitant]
  4. ZEMPLAR [Concomitant]
  5. L-CARNITINE [Concomitant]
  6. AKDALET [Concomitant]
  7. BENICAR [Concomitant]
  8. BOSENTION [Concomitant]
  9. FOLATE [Concomitant]
  10. RENAGEL                            /01459901/ [Concomitant]
  11. PHOSLO [Concomitant]
  12. CALCIUM CARBONATE [Concomitant]
  13. SENSIPAR [Concomitant]

REACTIONS (1)
  - DRUG INEFFECTIVE [None]
